FAERS Safety Report 9882115 (Version 3)
Quarter: 2014Q2

REPORT INFORMATION
  Report Type: Spontaneous
  Country: US (occurrence: US)
  Receive Date: 20140207
  Receipt Date: 20140404
  Transmission Date: 20141212
  Serious: No
  Sender: FDA-Public Use
  Company Number: US-009507513-1202USA00442

PATIENT
  Sex: Male

DRUGS (3)
  1. PROPECIA [Suspect]
     Indication: ALOPECIA
     Dosage: 1 MG, QD
     Route: 048
     Dates: start: 20090416
  2. LEXAPRO [Concomitant]
     Indication: DEPRESSION
     Dosage: 20 MG, UNK
     Dates: start: 2010
  3. LEXAPRO [Concomitant]
     Indication: ANXIETY

REACTIONS (9)
  - Cognitive disorder [Not Recovered/Not Resolved]
  - Dizziness [Unknown]
  - Obsessive-compulsive disorder [Unknown]
  - Hiatus hernia [Unknown]
  - Sexual dysfunction [Not Recovered/Not Resolved]
  - Erectile dysfunction [Unknown]
  - Breast enlargement [Unknown]
  - Loss of libido [Unknown]
  - Gastrooesophageal reflux disease [Unknown]
